FAERS Safety Report 5675194-0 (Version None)
Quarter: 2008Q1

REPORT INFORMATION
  Report Type: 
  Country: None (occurrence: None)
  Receive Date: 20080320
  Receipt Date: 20080317
  Transmission Date: 20080703
  Serious: Yes (Hospitalization)
  Sender: FDA-Public Use
  Company Number: US-ABBOTT-08P-163-0442814-00

PATIENT
  Sex: Female
  Weight: 64.468 kg

DRUGS (6)
  1. HUMIRA [Suspect]
     Indication: CROHN'S DISEASE
     Route: 058
     Dates: start: 20080201
  2. HUMIRA [Suspect]
     Route: 058
     Dates: start: 20070501, end: 20080201
  3. PREDNISONE TAB [Suspect]
     Indication: CROHN'S DISEASE
     Route: 048
     Dates: start: 20080317
  4. PREDNISONE TAB [Suspect]
     Route: 048
     Dates: start: 20080101
  5. PREDNISONE TAB [Suspect]
     Dates: end: 20080317
  6. AZATHIOPRINE [Concomitant]
     Indication: CROHN'S DISEASE
     Route: 048
     Dates: start: 20080201

REACTIONS (12)
  - CROHN'S DISEASE [None]
  - FREQUENT BOWEL MOVEMENTS [None]
  - IMMUNOSUPPRESSION [None]
  - PHARYNGITIS STREPTOCOCCAL [None]
  - PLEURISY [None]
  - RECTAL DISCHARGE [None]
  - RECTAL FISSURE [None]
  - RECTAL HAEMORRHAGE [None]
  - TONSILLITIS [None]
  - URINARY TRACT INFECTION [None]
  - VAGINAL DISCHARGE [None]
  - VAGINAL HAEMORRHAGE [None]
